FAERS Safety Report 4479384-4 (Version None)
Quarter: 2004Q4

REPORT INFORMATION
  Report Type: 
  Country: None (occurrence: None)
  Receive Date: 20041020
  Receipt Date: 20041008
  Transmission Date: 20050328
  Serious: Yes (Other)
  Sender: FDA-Public Use
  Company Number: 200420206GDDC

PATIENT
  Sex: 0

DRUGS (1)
  1. TAXOTERE [Suspect]
     Dosage: DOSE: UNK
     Route: 042

REACTIONS (2)
  - BLINDNESS UNILATERAL [None]
  - OPTIC NEURITIS RETROBULBAR [None]
